FAERS Safety Report 7329801 (Version 5)
Quarter: 2014Q4

REPORT INFORMATION
  Report Type: Spontaneous
  Country: US (occurrence: US)
  Receive Date: 20100324
  Receipt Date: 20141107
  Transmission Date: 20150529
  Serious: Yes (Hospitalization, Disabling)
  Sender: FDA-Public Use
  Company Number: US-BAYER-201017165NA

PATIENT
  Age: 38 Year
  Sex: Female
  Weight: 55.78 kg

DRUGS (5)
  1. TEGRETOL XR [Concomitant]
     Active Substance: CARBAMAZEPINE
     Dates: start: 20090425
  2. TRETINOIN. [Concomitant]
     Active Substance: TRETINOIN
     Dosage: TRETINOIN CRE
     Dates: start: 20080825
  3. YAZ [Suspect]
     Active Substance: DROSPIRENONE\ETHINYL ESTRADIOL
     Indication: PRODUCT USED FOR UNKNOWN INDICATION
     Route: 048
     Dates: start: 200902, end: 200904
  4. YASMIN [Suspect]
     Active Substance: DROSPIRENONE\ETHINYL ESTRADIOL
     Indication: CONTRACEPTION
     Dosage: UNK, QD
     Route: 048
     Dates: start: 200902, end: 20090415
  5. SIMVASTATIN. [Concomitant]
     Active Substance: SIMVASTATIN
     Dates: start: 20090428, end: 20090812

REACTIONS (16)
  - Cerebrovascular accident [Unknown]
  - Dysphagia [Unknown]
  - Panic attack [Unknown]
  - Nightmare [None]
  - Cerebral artery occlusion [None]
  - Unevaluable event [Unknown]
  - Fear [None]
  - Cognitive disorder [None]
  - Aphasia [Unknown]
  - Amnesia [Unknown]
  - Headache [Unknown]
  - Confusional state [Unknown]
  - Simple partial seizures [Unknown]
  - Anxiety [Unknown]
  - Vertigo [Unknown]
  - Muscle spasms [Unknown]

NARRATIVE: CASE EVENT DATE: 200904
